FAERS Safety Report 4785574-3 (Version None)
Quarter: 2005Q4

REPORT INFORMATION
  Report Type: 
  Country: None (occurrence: None)
  Receive Date: 20051003
  Receipt Date: 20050710
  Transmission Date: 20060501
  Serious: Yes (Hospitalization)
  Sender: FDA-Public Use
  Company Number: PT-GLAXOSMITHKLINE-B0387246A

PATIENT
  Age: 28 Year
  Sex: Male
  Weight: 55.5 kg

DRUGS (5)
  1. GW873140 [Suspect]
     Indication: HIV INFECTION
     Dosage: 800MG TWICE PER DAY
     Route: 048
     Dates: start: 20050613, end: 20050717
  2. COMBIVIR [Suspect]
     Indication: HIV INFECTION
     Dosage: 1TAB TWICE PER DAY
     Route: 048
     Dates: start: 20050613, end: 20050717
  3. MAXILASE [Concomitant]
     Dates: start: 20050621, end: 20050624
  4. NIMED [Concomitant]
     Dates: start: 20050704, end: 20050708
  5. OXAZEPAM [Concomitant]
     Dates: start: 20050709, end: 20050713

REACTIONS (5)
  - BACK PAIN [None]
  - C-REACTIVE PROTEIN INCREASED [None]
  - COUGH [None]
  - PYREXIA [None]
  - SOMNOLENCE [None]
